FAERS Safety Report 8380718-9 (Version None)
Quarter: 2012Q2

REPORT INFORMATION
  Report Type: 
  Country: None (occurrence: None)
  Receive Date: 20120523
  Receipt Date: 20120518
  Transmission Date: 20120825
  Serious: Yes (Hospitalization)
  Sender: FDA-Public Use
  Company Number: AU-ROCHE-1070485

PATIENT
  Sex: Female
  Weight: 90 kg

DRUGS (4)
  1. MABTHERA [Suspect]
     Indication: B-CELL LYMPHOMA
     Dosage: LAST DOSE PRIOR TO SAE: 08/MAY/2012
     Route: 042
     Dates: start: 20120508
  2. CYCLOPHOSPHAMIDE [Suspect]
     Indication: B-CELL LYMPHOMA
     Dosage: LAST DOSE PRIOR TO SAE: 08/MAY/2012
     Route: 042
     Dates: start: 20120508
  3. PREDNISOLONE [Suspect]
     Indication: B-CELL LYMPHOMA
     Dosage: LAST DOSE PRIOR TO SAE: 12/MAY/2012
     Route: 048
     Dates: start: 20120508
  4. VINCRISTINE [Suspect]
     Indication: B-CELL LYMPHOMA
     Dosage: LAST DOSE PRIOR TO SAE: 08/MAY/2012
     Route: 042
     Dates: start: 20120508

REACTIONS (1)
  - ARTERIAL THROMBOSIS [None]
